FAERS Safety Report 6062858-2 (Version None)
Quarter: 2009Q1

REPORT INFORMATION
  Report Type: 
  Country: None (occurrence: None)
  Receive Date: 20090202
  Receipt Date: 20090202
  Transmission Date: 20090719
  Serious: Yes (Life-Threatening, Hospitalization)
  Sender: FDA-Public Use
  Company Number: None

PATIENT
  Age: 72 Year
  Sex: Female
  Weight: 63.9572 kg

DRUGS (10)
  1. AGGRENOX [Suspect]
     Indication: CEREBROVASCULAR ACCIDENT
     Dosage: 1 CAP BID PO
     Route: 048
     Dates: start: 20090125, end: 20090126
  2. LOTENSIN [Suspect]
     Indication: HYPERTENSION
     Dosage: 10MG QDAY PO
     Route: 048
  3. POTASSIUM CHLORIDE [Concomitant]
  4. PRAVACHOL [Concomitant]
  5. LOTENSIN [Concomitant]
  6. LYRICA [Concomitant]
  7. PEPCID [Concomitant]
  8. LOVENOX [Concomitant]
  9. DOCUSATE [Concomitant]
  10. TYLENOL [Concomitant]

REACTIONS (2)
  - OBSTRUCTIVE AIRWAYS DISORDER [None]
  - SWOLLEN TONGUE [None]
